FAERS Safety Report 24555950 (Version 1)
Quarter: 2024Q4

REPORT INFORMATION
  Report Type: Spontaneous
  Country: US (occurrence: US)
  Receive Date: 20241028
  Receipt Date: 20241028
  Transmission Date: 20250115
  Serious: Yes (Disabling, Other)
  Sender: MERCK
  Company Number: US-009507513-2410USA011314

PATIENT
  Age: 73 Year
  Sex: Female

DRUGS (2)
  1. JANUVIA [Suspect]
     Active Substance: SITAGLIPTIN PHOSPHATE
     Dosage: 1 DOSAGE FORM, (DF) ONCE DAILY (QD).
     Route: 048
     Dates: start: 2023
  2. LANTUS [Suspect]
     Active Substance: INSULIN GLARGINE
     Dosage: STRENGTH: 100 IU/ML

REACTIONS (6)
  - Disability [Unknown]
  - Leg amputation [Unknown]
  - Lipoprotein deficiency [Not Recovered/Not Resolved]
  - Urinary tract infection [Not Recovered/Not Resolved]
  - Peripheral arterial occlusive disease [Not Recovered/Not Resolved]
  - Diabetic neuropathy [Unknown]

NARRATIVE: CASE EVENT DATE: 20230203
